FAERS Safety Report 10205740 (Version 2)
Quarter: 2014Q3

REPORT INFORMATION
  Report Type: Report from Study
  Country: DE (occurrence: DE)
  Receive Date: 20140530
  Receipt Date: 20140704
  Transmission Date: 20150326
  Serious: Yes (Hospitalization)
  Sender: FDA-Public Use
  Company Number: DE-AMGEN-DEUCT2014038470

PATIENT
  Age: 75 Year
  Sex: Male

DRUGS (4)
  1. EPIRUBICIN [Concomitant]
     Active Substance: EPIRUBICIN
     Indication: GASTRIC CANCER
     Dosage: 50 MG/M2, UNK
     Route: 065
     Dates: start: 20120217, end: 20120413
  2. CISPLATIN. [Concomitant]
     Active Substance: CISPLATIN
     Indication: GASTRIC CANCER
     Dosage: 60 MG/M2, UNK
     Route: 065
     Dates: start: 20120217, end: 20140413
  3. PANITUMUMAB [Suspect]
     Active Substance: PANITUMUMAB
     Indication: GASTRIC CANCER
     Dosage: 9 MG/KG, UNK
     Route: 065
     Dates: start: 20120217, end: 20120413
  4. CAPECITABINE [Concomitant]
     Active Substance: CAPECITABINE
     Indication: GASTRIC CANCER
     Dosage: 1214 MG/M2, UNK
     Route: 065
     Dates: start: 20120217, end: 20120503

REACTIONS (1)
  - Anastomotic complication [Recovered/Resolved]

NARRATIVE: CASE EVENT DATE: 20120702
